FAERS Safety Report 5826270-0 (Version None)
Quarter: 2008Q3

REPORT INFORMATION
  Report Type: 
  Country: None (occurrence: None)
  Receive Date: 20080729
  Receipt Date: 20080717
  Transmission Date: 20090109
  Serious: Yes (Other)
  Sender: FDA-Public Use
  Company Number: US-PFIZER INC-2008054568

PATIENT
  Age: 71 Year
  Sex: Female

DRUGS (11)
  1. VARENICLINE TABLETS [Suspect]
     Indication: SMOKING CESSATION THERAPY
  2. QUINAPRIL [Concomitant]
     Route: 048
  3. SIMVASTATIN [Concomitant]
     Route: 048
  4. LEVOTHYROXINE SODIUM [Concomitant]
     Route: 048
  5. PREDNISONE [Concomitant]
     Route: 048
  6. SERETIDE MITE [Concomitant]
     Dosage: TEXT:ONE PUFF
     Route: 055
  7. ALBUTEROL [Concomitant]
     Dosage: TEXT:ONE PUFF-FREQ:AS NEEDED
     Route: 055
  8. ALBUTEROL SULFATE/IPRATROPIUM BROMIDE [Concomitant]
     Dosage: TEXT:TWO PUFFS-FREQ:AS NEEDED
     Route: 055
  9. TIOTROPIUM [Concomitant]
     Route: 055
  10. CARISOPRODOL [Concomitant]
     Dosage: TEXT:A HALF TABLET DAILY
     Route: 048
  11. OXYCODONE HCL [Concomitant]
     Route: 048

REACTIONS (4)
  - HEADACHE [None]
  - PRURITUS [None]
  - RASH GENERALISED [None]
  - SWELLING FACE [None]
